FAERS Safety Report 9090001 (Version 2)
Quarter: 2013Q1

REPORT INFORMATION
  Report Type: Report from Study
  Country: US (occurrence: US)
  Receive Date: 20130201
  Receipt Date: 20130220
  Transmission Date: 20140127
  Serious: Yes (Hospitalization)
  Sender: FDA-Public Use
  Company Number: US-TEVA-383898USA

PATIENT
  Age: 65 Year
  Sex: Male
  Weight: 72 kg

DRUGS (20)
  1. FLUOROURACIL [Suspect]
     Indication: COLORECTAL CANCER METASTATIC
     Dosage: 28.5714 MG/M2 DAILY; REGIMEN #1
     Route: 040
     Dates: start: 20121016
  2. FLUOROURACIL [Suspect]
     Dosage: 171.4286 MG/M2 DAILY; REGIMEN #2
     Route: 040
     Dates: start: 20121016
  3. FOLINIC ACID [Suspect]
     Indication: COLORECTAL CANCER METASTATIC
     Dosage: 28.5714 MG/M2 DAILY;
     Route: 040
     Dates: start: 20121016
  4. OXALIPLATIN [Suspect]
     Indication: COLORECTAL CANCER METASTATIC
     Dosage: 6.0714 MG/M2 DAILY;
     Route: 042
     Dates: start: 20121016
  5. BEVACIZUMAB [Suspect]
     Dosage: .3571 MG/M2 DAILY;
     Route: 042
     Dates: start: 20121016
  6. METOPROLOL TARTRATE [Concomitant]
     Dates: start: 201209
  7. PROCHLORPERAZINE MALEATE [Concomitant]
  8. ONDANSETRON [Concomitant]
     Dates: start: 20121019
  9. LOPERAMIDE HYDROCHLORIDE [Concomitant]
     Dates: start: 20121031
  10. ASCORBIC ACID [Concomitant]
     Dates: start: 1990
  11. PARACETAMOL [Concomitant]
     Dates: start: 20121019
  12. PALONOSETRON HYDROCHLORIDE [Concomitant]
     Dates: start: 20121016
  13. DEXAMETHASONE [Concomitant]
     Dates: start: 20121016
  14. FERAHEME [Concomitant]
     Dates: start: 20120906
  15. NARINE [Concomitant]
     Dates: start: 20121116
  16. PEGFILGRASTIM [Concomitant]
     Dates: start: 20121206
  17. AZITHROMYCIN [Concomitant]
     Dates: start: 20121231
  18. BMX RINSE [Concomitant]
     Dates: start: 20130104, end: 20130105
  19. FLUCONAZOLE [Concomitant]
     Dates: start: 20130108
  20. HEPARIN SODIUM [Concomitant]
     Dates: start: 20130108

REACTIONS (1)
  - Renal failure acute [Recovered/Resolved]
